FAERS Safety Report 9154912 (Version 1)
Quarter: 2013Q1

REPORT INFORMATION
  Report Type: Spontaneous
  Country: US (occurrence: None)
  Receive Date: 20130305
  Receipt Date: 20130305
  Transmission Date: 20140127
  Serious: Yes (Hospitalization)
  Sender: FDA-Public Use
  Company Number: None

PATIENT
  Age: 68 Year
  Sex: Male
  Weight: 68.1 kg

DRUGS (1)
  1. MELOXICAM [Suspect]
     Indication: PAIN
     Route: 048
     Dates: start: 20121224, end: 20121231

REACTIONS (4)
  - Gastric ulcer [None]
  - Duodenal ulcer haemorrhage [None]
  - Gastric haemorrhage [None]
  - Gastric mucosa erythema [None]
